FAERS Safety Report 20398113 (Version 2)
Quarter: 2022Q1

REPORT INFORMATION
  Report Type: Spontaneous
  Country: US (occurrence: US)
  Receive Date: 20220131
  Receipt Date: 20220201
  Transmission Date: 20220423
  Serious: No
  Sender: FDA-Public Use
  Company Number: US-ABBVIE-21K-163-3834989-00

PATIENT
  Age: 60 Year
  Sex: Female
  Weight: 108.96 kg

DRUGS (9)
  1. HUMIRA [Suspect]
     Active Substance: ADALIMUMAB
     Indication: Rheumatoid arthritis
     Route: 058
     Dates: start: 20201203
  2. COVID-19 VACCINE (NON-ABBVIE) [Concomitant]
     Indication: COVID-19 immunisation
     Dosage: PFIZER MANUFACTURER
     Dates: start: 20210319
  3. Aciphex (NON-ABBVIE) [Concomitant]
     Indication: Gastrooesophageal reflux disease
  4. Prednisone (NON-ABBVIE) [Concomitant]
     Indication: Rheumatoid arthritis
  5. Famotidine (NON-ABBVIE) [Concomitant]
     Indication: Gastrooesophageal reflux disease
  6. Cetirizine (NON-ABBVIE) [Concomitant]
     Indication: Hypersensitivity
  7. Tumeric (NON-ABBVIE) [Concomitant]
     Indication: Supplementation therapy
  8. Imitrex (NON-ABBVIE) [Concomitant]
     Indication: Migraine
  9. Sucralfate (NON-ABBVIE) [Concomitant]
     Indication: Gastric disorder

REACTIONS (2)
  - Wrong technique in product usage process [Recovered/Resolved]
  - Injection site haemorrhage [Recovered/Resolved]

NARRATIVE: CASE EVENT DATE: 20210326
